FAERS Safety Report 16385232 (Version 2)
Quarter: 2019Q3

REPORT INFORMATION
  Report Type: Report from Study
  Country: GB (occurrence: GB)
  Receive Date: 20190603
  Receipt Date: 20190718
  Transmission Date: 20191004
  Serious: Yes (Death, Life-Threatening)
  Sender: FDA-Public Use
  Company Number: PHHY2019GB126190

PATIENT
  Age: 65 Year
  Sex: Female

DRUGS (3)
  1. LOPERAMIDE [Concomitant]
     Active Substance: LOPERAMIDE
     Indication: DIARRHOEA
     Dosage: 2 MG, PRN
     Route: 048
     Dates: start: 20180628
  2. DOMPERIDONE [Concomitant]
     Active Substance: DOMPERIDONE
     Indication: ANTIEMETIC SUPPORTIVE CARE
     Dosage: 10 MG, TDS PRN (STOPPED ON 09 MAY 2019)
     Route: 048
     Dates: start: 20180628
  3. MIDOSTAURIN [Suspect]
     Active Substance: MIDOSTAURIN
     Indication: SYSTEMIC MASTOCYTOSIS
     Dosage: 100 MG, BID STOPPED ON 09 MAY 2019
     Route: 048
     Dates: start: 20180628

REACTIONS (6)
  - Visual impairment [Fatal]
  - Facial paralysis [Fatal]
  - Coma scale abnormal [Fatal]
  - Headache [Fatal]
  - Thrombocytopenia [Unknown]
  - Subarachnoid haemorrhage [Fatal]

NARRATIVE: CASE EVENT DATE: 201807
